FAERS Safety Report 9474007 (Version 1)
Quarter: 2013Q3

REPORT INFORMATION
  Report Type: Spontaneous
  Country: IT (occurrence: IT)
  Receive Date: 20130823
  Receipt Date: 20130823
  Transmission Date: 20140515
  Serious: Yes (Hospitalization)
  Sender: FDA-Public Use
  Company Number: IT-TEVA-427589ISR

PATIENT
  Age: 62 Year
  Sex: Male
  Weight: 75 kg

DRUGS (3)
  1. CISPLATINO TEVA [Suspect]
     Indication: GASTRIC CANCER
     Dosage: 116,4 MG CYCLICAL; CONCENTRATE FOR INJECTABLE SOLUTION
     Route: 042
     Dates: start: 20120924, end: 20120929
  2. EPIRUBICINA [Suspect]
     Indication: GASTRIC CANCER
     Dosage: 97 MG CYCLICAL; CONCENTRATE FOR INJECTABLE SOLUTION
     Route: 042
     Dates: start: 20120924, end: 20120929
  3. XELODA [Suspect]
     Indication: GASTRIC CANCER
     Dosage: 48300 MG CYCLICAL
     Route: 048
     Dates: start: 20120924, end: 20120929

REACTIONS (2)
  - Gastrointestinal toxicity [Unknown]
  - Weight decreased [Unknown]
